FAERS Safety Report 5047099-X (Version None)
Quarter: 2006Q3

REPORT INFORMATION
  Report Type: 
  Country: None (occurrence: None)
  Receive Date: 20060703
  Receipt Date: 20060622
  Transmission Date: 20061208
  Serious: Yes (Other)
  Sender: FDA-Public Use
  Company Number: 2006002619

PATIENT
  Age: 62 Year
  Sex: Male
  Weight: 97.977 kg

DRUGS (2)
  1. VIAGRA [Suspect]
     Indication: ERECTILE DYSFUNCTION
     Dosage: 100 MG (AS NECESSARY), ORAL
     Route: 048
  2. FENTANYL [Concomitant]

REACTIONS (7)
  - ANAEMIA [None]
  - BLOOD IRON DECREASED [None]
  - CONCOMITANT DISEASE PROGRESSION [None]
  - DRUG EFFECT DECREASED [None]
  - OSTEOARTHRITIS [None]
  - PEPTIC ULCER [None]
  - WEIGHT INCREASED [None]
